FAERS Safety Report 6634386-4 (Version None)
Quarter: 2010Q1

REPORT INFORMATION
  Report Type: 
  Country: None (occurrence: None)
  Receive Date: 20100315
  Receipt Date: 20100304
  Transmission Date: 20100710
  Serious: Yes (Other)
  Sender: FDA-Public Use
  Company Number: JP-ROCHE-688102

PATIENT
  Sex: Male

DRUGS (15)
  1. AVASTIN [Suspect]
     Indication: RECTAL CANCER
     Route: 041
     Dates: start: 20100112, end: 20100112
  2. AVASTIN [Suspect]
     Route: 041
     Dates: start: 20100202, end: 20100202
  3. AVASTIN [Suspect]
     Route: 041
     Dates: start: 20100223, end: 20100223
  4. XELODA [Suspect]
     Indication: RECTAL CANCER
     Dosage: DRUG NAME:XELODA 300, DOSE DECRESED
     Route: 048
     Dates: start: 20100112, end: 20100125
  5. XELODA [Suspect]
     Route: 048
     Dates: start: 20100202, end: 20100215
  6. XELODA [Suspect]
     Route: 048
     Dates: start: 20100226, end: 20100301
  7. ELPLAT [Suspect]
     Indication: RECTAL CANCER
     Route: 041
     Dates: start: 20100112, end: 20100112
  8. ELPLAT [Suspect]
     Route: 041
     Dates: start: 20100202, end: 20100202
  9. ELPLAT [Suspect]
     Route: 041
     Dates: start: 20100223, end: 20100223
  10. CARDENALIN [Concomitant]
     Route: 048
     Dates: start: 20070403
  11. NITOROL [Concomitant]
     Route: 048
     Dates: start: 20070403
  12. LANDEL [Concomitant]
     Route: 048
     Dates: start: 20070403
  13. HYPEN [Concomitant]
     Route: 048
     Dates: start: 20070403
  14. OMEPRAL [Concomitant]
     Route: 048
     Dates: start: 20070403
  15. OMEPRAL [Concomitant]
     Route: 048
     Dates: start: 20070403

REACTIONS (6)
  - ANAPHYLACTIC SHOCK [None]
  - HYPERHIDROSIS [None]
  - HYPOAESTHESIA [None]
  - SKIN CHAPPED [None]
  - STOMATITIS [None]
  - YAWNING [None]
